FAERS Safety Report 9520515 (Version 2)
Quarter: 2013Q3

REPORT INFORMATION
  Report Type: Spontaneous
  Country: DE (occurrence: DE)
  Receive Date: 20130913
  Receipt Date: 20130926
  Transmission Date: 20140515
  Serious: Yes (Death, Hospitalization, Other)
  Sender: FDA-Public Use
  Company Number: DE-AMGEN-DEUSP2013063828

PATIENT
  Age: 73 Year
  Sex: Female
  Weight: 88 kg

DRUGS (3)
  1. NEULASTA [Suspect]
     Indication: NEUTROPENIA
     Dosage: 6 MG, 1X
     Route: 058
     Dates: start: 20130826, end: 20130826
  2. NEULASTA [Suspect]
     Indication: PANCYTOPENIA
  3. CHEMOTHERAPEUTICS [Suspect]
     Indication: BRONCHIAL CARCINOMA
     Dosage: UNK
     Route: 065
     Dates: end: 20130819

REACTIONS (6)
  - Death [Fatal]
  - General physical health deterioration [Unknown]
  - Dyspnoea [Unknown]
  - Pericardial effusion [Unknown]
  - Pain [Unknown]
  - Drug ineffective [Not Recovered/Not Resolved]
